FAERS Safety Report 25654503 (Version 9)
Quarter: 2025Q4

REPORT INFORMATION
  Report Type: Spontaneous
  Country: EU (occurrence: EU)
  Receive Date: 20250807
  Receipt Date: 20251204
  Transmission Date: 20260117
  Serious: Yes (Hospitalization, Other)
  Sender: SANDOZ
  Company Number: EU-NOVPHSZ-PHHY2018CZ196349

PATIENT
  Age: 25 Year
  Sex: Male

DRUGS (46)
  1. AMOXICILLIN [Suspect]
     Active Substance: AMOXICILLIN
     Indication: Urticaria
     Dosage: 2 G, QD (1 G, BID), 1 GRAM, TWO TIMES A DAY, START DATE: 26-FEB-2016
     Route: 048
     Dates: start: 20160226
  2. AMOXICILLIN [Suspect]
     Active Substance: AMOXICILLIN
     Indication: Chronic spontaneous urticaria
     Dosage: 2 G, QD, 1 GRAM, TWO TIMES A DAY, START  DATE: 26-FEB-2016
     Route: 048
     Dates: start: 20160226
  3. AZITHROMYCIN [Suspect]
     Active Substance: AZITHROMYCIN
     Indication: Chronic spontaneous urticaria
     Dosage: 500 MG, QD (ONCE A DAY)
     Route: 065
     Dates: start: 20160203, end: 20160209
  4. AZITHROMYCIN [Suspect]
     Active Substance: AZITHROMYCIN
     Indication: Urticaria
  5. BILASTINE [Suspect]
     Active Substance: BILASTINE
     Dosage: 20 MG, QD
     Route: 048
     Dates: start: 201601, end: 201601
  6. BILASTINE [Suspect]
     Active Substance: BILASTINE
     Indication: Urticaria chronic
     Dosage: 40 MG, QD
     Route: 048
     Dates: start: 201601, end: 20160226
  7. BILASTINE [Suspect]
     Active Substance: BILASTINE
     Dosage: 40 MG, QD
     Route: 048
     Dates: start: 201601, end: 20160226
  8. BILASTINE [Suspect]
     Active Substance: BILASTINE
     Dosage: 40 MG, QD
     Route: 048
     Dates: end: 201602
  9. BILASTINE [Suspect]
     Active Substance: BILASTINE
     Dosage: 60 MG, QD
     Route: 048
     Dates: end: 201602
  10. BILASTINE [Suspect]
     Active Substance: BILASTINE
     Dosage: 20 MG, QD
     Route: 065
     Dates: start: 2016, end: 2016
  11. BILASTINE [Suspect]
     Active Substance: BILASTINE
     Dosage: 40 MG, QD
     Route: 065
     Dates: start: 201612
  12. BILASTINE [Suspect]
     Active Substance: BILASTINE
     Dosage: 40 MG, QD
     Route: 048
     Dates: start: 20160226
  13. BILASTINE [Suspect]
     Active Substance: BILASTINE
     Dosage: 60 MG
     Route: 065
     Dates: end: 201602
  14. BILASTINE [Suspect]
     Active Substance: BILASTINE
     Dosage: 60 MG, QD
     Route: 048
     Dates: start: 201602
  15. BILASTINE [Suspect]
     Active Substance: BILASTINE
     Indication: Chronic spontaneous urticaria
     Dosage: 60 MG, QD
     Route: 065
     Dates: start: 20160226
  16. BILASTINE [Suspect]
     Active Substance: BILASTINE
     Indication: Urticaria chronic
     Dosage: 60 MG, QD
     Route: 065
     Dates: start: 20160226
  17. BILASTINE [Suspect]
     Active Substance: BILASTINE
     Indication: Urticaria chronic
     Dosage: 60 MG, QD
     Route: 065
     Dates: start: 20160226
  18. BILASTINE [Suspect]
     Active Substance: BILASTINE
     Dosage: 60 MG, QD 26-FEB-2016 00:00
     Route: 065
     Dates: end: 201602
  19. BILASTINE [Suspect]
     Active Substance: BILASTINE
     Dosage: 60 MG, QD 26-FEB-2016 00:00
     Route: 065
  20. BILASTINE [Suspect]
     Active Substance: BILASTINE
     Dosage: 60 MG, QD 26-FEB-2016 00:00
     Route: 065
  21. BILASTINE [Suspect]
     Active Substance: BILASTINE
     Dosage: 60 MG, QD 26-FEB-2016 00:00
     Route: 065
  22. DESLORATADINE [Suspect]
     Active Substance: DESLORATADINE
     Indication: Urticaria
     Dosage: 5 MG, QD
     Route: 048
     Dates: start: 201601, end: 201601
  23. PREDNISONE [Suspect]
     Active Substance: PREDNISONE
     Dosage: 10 MG, QD
     Route: 048
  24. PREDNISONE [Suspect]
     Active Substance: PREDNISONE
     Indication: Chronic spontaneous urticaria
     Dosage: 10 MG, QD, START DATE:DEC-2016
     Route: 048
  25. PREDNISONE [Suspect]
     Active Substance: PREDNISONE
     Dosage: 10 MG
     Route: 048
     Dates: start: 2016
  26. PREDNISONE [Suspect]
     Active Substance: PREDNISONE
     Indication: Urticaria
     Dosage: 40 MG, QD
     Route: 048
     Dates: start: 20160226
  27. PREDNISONE [Suspect]
     Active Substance: PREDNISONE
     Dosage: 60 MG, QD
     Route: 065
     Dates: start: 20160212, end: 20160225
  28. XOLAIR [Suspect]
     Active Substance: OMALIZUMAB
     Indication: Urticaria
     Dosage: 1 GRAM FOR 1 HOUR (TABLET)
     Route: 048
     Dates: start: 20160226
  29. XOLAIR [Suspect]
     Active Substance: OMALIZUMAB
     Indication: Chronic spontaneous urticaria
     Dosage: UNK, START DATE: 21-DEC-2016
     Route: 065
  30. XOLAIR [Suspect]
     Active Substance: OMALIZUMAB
     Dosage: UNK, START DATE:APR-2016
     Route: 065
  31. BETAMETHASONE [Concomitant]
     Active Substance: BETAMETHASONE
     Indication: Chronic spontaneous urticaria
     Dosage: UNK
     Route: 065
  32. BETAMETHASONE [Concomitant]
     Active Substance: BETAMETHASONE
     Indication: Urticaria
     Dosage: UNK
     Route: 065
  33. BETAMETHASONE [Concomitant]
     Active Substance: BETAMETHASONE
     Dosage: UNK
     Route: 065
  34. BETAMETHASONE [Concomitant]
     Active Substance: BETAMETHASONE
     Indication: Product used for unknown indication
     Dosage: UNK, TOPICAL
     Route: 061
  35. BETAMETHASONE DIPROPIONATE [Concomitant]
     Active Substance: BETAMETHASONE DIPROPIONATE
     Indication: Urticaria
     Dosage: UNK
     Route: 030
  36. BETAMETHASONE DIPROPIONATE [Concomitant]
     Active Substance: BETAMETHASONE DIPROPIONATE
     Indication: Chronic spontaneous urticaria
  37. BETAMETHASONE DIPROPIONATE [Concomitant]
     Active Substance: BETAMETHASONE DIPROPIONATE
     Indication: Product used for unknown indication
  38. BISULEPIN HYDROCHLORIDE [Concomitant]
     Active Substance: BISULEPIN HYDROCHLORIDE
     Indication: Product used for unknown indication
     Dosage: UNK
     Route: 065
  39. BISULEPIN HYDROCHLORIDE [Concomitant]
     Active Substance: BISULEPIN HYDROCHLORIDE
     Dosage: UNK
     Route: 065
  40. BISULEPIN HYDROCHLORIDE [Concomitant]
     Active Substance: BISULEPIN HYDROCHLORIDE
     Dosage: UNK, UNKNOWN FREQ
     Route: 065
  41. DIPROPHOS [Concomitant]
     Active Substance: BETAMETHASONE DIPROPIONATE\BETAMETHASONE SODIUM PHOSPHATE
     Indication: Chronic spontaneous urticaria
     Dosage: 1 ML
     Route: 030
  42. DIPROPHOS [Concomitant]
     Active Substance: BETAMETHASONE DIPROPIONATE\BETAMETHASONE SODIUM PHOSPHATE
     Indication: Urticaria
     Dosage: 1 ML
     Route: 030
     Dates: start: 20160203
  43. DIPROPHOS [Concomitant]
     Active Substance: BETAMETHASONE DIPROPIONATE\BETAMETHASONE SODIUM PHOSPHATE
     Indication: Urticaria
  44. XOLAIR [Concomitant]
     Active Substance: OMALIZUMAB
     Indication: Chronic spontaneous urticaria
     Route: 065
  45. XOLAIR [Concomitant]
     Active Substance: OMALIZUMAB
     Indication: Chronic spontaneous urticaria
     Route: 065
  46. XOLAIR [Concomitant]
     Active Substance: OMALIZUMAB
     Indication: Urticaria

REACTIONS (14)
  - Leukocytosis [Unknown]
  - Polycythaemia [Unknown]
  - Nausea [Recovered/Resolved]
  - Abdominal pain lower [Recovered/Resolved]
  - Abdominal pain lower [Recovered/Resolved]
  - Prescribed overdose [Unknown]
  - Drug ineffective [Recovered/Resolved]
  - Oropharyngeal discomfort [Recovered/Resolved]
  - Rash [Recovering/Resolving]
  - Dysphagia [Recovering/Resolving]
  - Disease recurrence [Recovering/Resolving]
  - Pruritus [Recovering/Resolving]
  - Chronic spontaneous urticaria [Recovering/Resolving]
  - Off label use [Unknown]

NARRATIVE: CASE EVENT DATE: 20160101
